FAERS Safety Report 9275359 (Version 5)
Quarter: 2013Q3

REPORT INFORMATION
  Report Type: Spontaneous
  Country: US (occurrence: US)
  Receive Date: 20130507
  Receipt Date: 20130718
  Transmission Date: 20140515
  Serious: No
  Sender: FDA-Public Use
  Company Number: US-PFIZER INC-2013137781

PATIENT
  Age: 87 Year
  Sex: Female
  Weight: 74.83 kg

DRUGS (9)
  1. NORVASC [Suspect]
     Indication: HYPERTENSION
     Dosage: 10 MG, 1X/DAY
     Dates: start: 2006
  2. NYSTATIN [Suspect]
     Indication: BLOOD CHOLESTEROL INCREASED
     Dosage: 1000 MG, 1X/DAY
  3. DETROL LA [Suspect]
     Indication: MICTURITION URGENCY
     Dosage: 40 MG, 1X/DAY
  4. DETROL LA [Suspect]
     Indication: URINARY INCONTINENCE
     Dosage: UNK
  5. TOLTERODINE TARTRATE [Suspect]
     Indication: BLADDER DISORDER
     Dosage: UNK
     Dates: start: 201304, end: 2013
  6. TOLTERODINE TARTRATE [Suspect]
     Indication: MICTURITION URGENCY
  7. TOLTERODINE TARTRATE [Suspect]
     Indication: URINARY INCONTINENCE
  8. OXYBUTYNIN [Suspect]
     Indication: BLADDER DISORDER
     Dosage: 5 MG, 2X/DAY
     Dates: start: 201303
  9. BACLOFEN [Concomitant]
     Indication: MUSCLE SPASMS
     Dosage: 10 MG, 2X/DAY

REACTIONS (10)
  - Drug ineffective [Unknown]
  - Sinusitis [Recovered/Resolved]
  - Malaise [Recovered/Resolved]
  - Chills [Recovering/Resolving]
  - Pyrexia [Recovering/Resolving]
  - Infection [Recovering/Resolving]
  - White blood cell count increased [Recovering/Resolving]
  - Asthenia [Recovered/Resolved]
  - Dry mouth [Unknown]
  - Dysphagia [Unknown]
